FAERS Safety Report 18442280 (Version 2)
Quarter: 2021Q1

REPORT INFORMATION
  Report Type: Spontaneous
  Country: US (occurrence: US)
  Receive Date: 20201029
  Receipt Date: 20210115
  Transmission Date: 20210419
  Serious: No
  Sender: FDA-Public Use
  Company Number: US-BAYER-2020-229716

PATIENT

DRUGS (3)
  1. DOAN^S BACKACHE PILLS [Concomitant]
     Indication: BACK PAIN
     Dosage: 4 DF
     Route: 048
  2. IBUPROFEN. [Concomitant]
     Active Substance: IBUPROFEN
     Indication: BACK PAIN
     Route: 048
  3. ALEVE [Suspect]
     Active Substance: NAPROXEN SODIUM
     Indication: BACK PAIN
     Dosage: UNK
     Route: 048

REACTIONS (1)
  - Extra dose administered [None]
